FAERS Safety Report 22119855 (Version 1)
Quarter: 2023Q1

REPORT INFORMATION
  Report Type: Spontaneous
  Country: US (occurrence: None)
  Receive Date: 20230321
  Receipt Date: 20230321
  Transmission Date: 20230417
  Serious: No
  Sender: FDA-Public Use
  Company Number: US-ROCHE-3104911

PATIENT
  Sex: Female

DRUGS (2)
  1. ERIVEDGE [Suspect]
     Active Substance: VISMODEGIB
     Indication: Basal cell carcinoma
     Route: 048
     Dates: start: 20220310
  2. ERIVEDGE [Suspect]
     Active Substance: VISMODEGIB
     Dates: start: 20220304

REACTIONS (3)
  - Hypogeusia [Unknown]
  - Ageusia [Unknown]
  - Muscle spasms [Unknown]
